FAERS Safety Report 5119916-6 (Version None)
Quarter: 2006Q3

REPORT INFORMATION
  Report Type: 
  Country: None (occurrence: None)
  Receive Date: 20060927
  Receipt Date: 20060918
  Transmission Date: 20061208
  Serious: Yes (Hospitalization, Other)
  Sender: FDA-Public Use
  Company Number: HQWYE998426APR06

PATIENT
  Age: 29 Year
  Sex: Male

DRUGS (8)
  1. RAPAMUNE [Suspect]
     Indication: PROPHYLAXIS AGAINST TRANSPLANT REJECTION
     Dosage: 2 MG 1X PER 1 DAY
     Route: 048
     Dates: start: 20060226, end: 20060428
  2. PREDNISONE TAB [Concomitant]
  3. MYCOPHENOLATE MOFETIL [Concomitant]
  4. CARDEGIC  (ACETYLSALICYLATE LYSINE) [Concomitant]
  5. AMLODIPINE [Concomitant]
  6. VALACYCLOVIR [Concomitant]
  7. DEPAKINE             (VALPROATE SODUM) [Concomitant]
  8. HEPARIN [Concomitant]

REACTIONS (3)
  - CARDIAC FAILURE [None]
  - MYOCARDIAL ISCHAEMIA [None]
  - THROMBOCYTOPENIA [None]
